FAERS Safety Report 18559364 (Version 1)
Quarter: 2020Q4

REPORT INFORMATION
  Report Type: Spontaneous
  Country: US (occurrence: US)
  Receive Date: 20201130
  Receipt Date: 20201130
  Transmission Date: 20210114
  Serious: No
  Sender: FDA-Public Use
  Company Number: US-PFIZER INC-2020467906

PATIENT
  Age: 66 Year
  Sex: Female
  Weight: 114.31 kg

DRUGS (1)
  1. NEURONTIN [Suspect]
     Active Substance: GABAPENTIN
     Dosage: 3200 MG, DAILY

REACTIONS (1)
  - Drug ineffective [Unknown]
